FAERS Safety Report 20781947 (Version 1)
Quarter: 2022Q2

REPORT INFORMATION
  Report Type: Spontaneous
  Country: CZ (occurrence: CZ)
  Receive Date: 20220504
  Receipt Date: 20220504
  Transmission Date: 20220721
  Serious: Yes (Other)
  Sender: FDA-Public Use
  Company Number: CZ-009507513-2205CZE000652

PATIENT
  Age: 60 Year
  Sex: Female

DRUGS (1)
  1. PEMBROLIZUMAB [Suspect]
     Active Substance: PEMBROLIZUMAB
     Indication: Non-small cell lung cancer metastatic
     Dosage: A TOTAL OF 27 CYCLES OF PEMBROLIZUMAB WERE ADMINISTERED TO THE PATIENT
     Dates: start: 201911, end: 202111

REACTIONS (4)
  - Diabetes mellitus inadequate control [Unknown]
  - Chronic obstructive pulmonary disease [Unknown]
  - Urinary tract infection [Unknown]
  - Spinal pain [Unknown]
